FAERS Safety Report 4283139-3 (Version None)
Quarter: 2004Q1

REPORT INFORMATION
  Report Type: 
  Country: None (occurrence: None)
  Receive Date: 20040121
  Receipt Date: 20040105
  Transmission Date: 20041129
  Serious: Yes (Hospitalization)
  Sender: FDA-Public Use
  Company Number: 214107

PATIENT
  Age: 61 Year
  Sex: Female
  Weight: 80 kg

DRUGS (9)
  1. NOVOSEVEN [Suspect]
     Indication: LIVER DISORDER
     Dosage: 60 UG/KG X 3 DOSES INTRAVENOUS
     Route: 042
     Dates: start: 20020122, end: 20020122
  2. RIFAMPICIN [Concomitant]
  3. MULTIVITAMINS (ERGOCALCIFEROL, THIAMINE HYDROCHLORIDE, RIBOFLAVIN, PAN [Concomitant]
  4. URSODEOXYCHOLIC ACID      (URSODEOXYCHOLIC ACID) [Concomitant]
  5. SPIRONOLACTONE [Concomitant]
  6. THYROXIN (LEVOTHYROXINE SODIUM) [Concomitant]
  7. PHYTONADIONE [Concomitant]
  8. ERGOCALCIFEROL (ERGOCALCIFEROL) [Concomitant]
  9. EFAMAST (EVENING PRIMROSE OIL) [Concomitant]

REACTIONS (3)
  - DYSPNOEA [None]
  - MYOCARDIAL INFARCTION [None]
  - PULMONARY OEDEMA [None]
